FAERS Safety Report 10258082 (Version 2)
Quarter: 2014Q3

REPORT INFORMATION
  Report Type: Spontaneous
  Country: US (occurrence: US)
  Receive Date: 20140625
  Receipt Date: 20140721
  Transmission Date: 20150326
  Serious: Yes (Other)
  Sender: FDA-Public Use
  Company Number: CHPA2014US008244

PATIENT
  Age: 79 Year
  Sex: Female

DRUGS (2)
  1. 4 WAY SALINE MOISTURIZING MIST [Suspect]
     Active Substance: SODIUM CHLORIDE
     Indication: NASAL DRYNESS
     Dosage: UNK, QHS
     Route: 045
     Dates: start: 2010
  2. 4 WAY SALINE MOISTURIZING MIST [Suspect]
     Active Substance: SODIUM CHLORIDE
     Dosage: UNK, QHS
     Route: 045
     Dates: start: 2010

REACTIONS (1)
  - Cataract [Not Recovered/Not Resolved]
